FAERS Safety Report 25245576 (Version 1)
Quarter: 2025Q2

REPORT INFORMATION
  Report Type: Spontaneous
  Country: US (occurrence: None)
  Receive Date: 20250426
  Receipt Date: 20250426
  Transmission Date: 20250717
  Serious: Yes (Disabling, Other)
  Sender: FDA-CTU
  Company Number: None

PATIENT
  Age: 56 Year
  Sex: Female
  Weight: 53.1 kg

DRUGS (3)
  1. ZIPRASIDONE [Suspect]
     Active Substance: ZIPRASIDONE
     Indication: Bipolar I disorder
     Dates: start: 20190108, end: 20250321
  2. SERTRALINE [Suspect]
     Active Substance: SERTRALINE HYDROCHLORIDE
  3. XANAX [Suspect]
     Active Substance: ALPRAZOLAM

REACTIONS (4)
  - Somnambulism [None]
  - Parasomnia [None]
  - Loss of consciousness [None]
  - Legal problem [None]

NARRATIVE: CASE EVENT DATE: 20250321
